FAERS Safety Report 9554168 (Version 1)
Quarter: 2013Q3

REPORT INFORMATION
  Report Type: Spontaneous
  Country: IN (occurrence: None)
  Receive Date: 20130814
  Receipt Date: 20130814
  Transmission Date: 20140515
  Serious: Yes (Other)
  Sender: FDA-Public Use
  Company Number: 2013-00824

PATIENT
  Age: 65 Year
  Sex: 0

DRUGS (5)
  1. ETHAMBUTOL HYDROCHLORIDE [Suspect]
     Indication: BONE TUBERCULOSIS
     Route: 048
     Dates: start: 20121001, end: 20130130
  2. SITAGLIPTIN (JANUVIA) [Concomitant]
  3. CALCIUM+VITAMIN D3 (CIPCAL 500) [Concomitant]
  4. FERROUS SULPHATE+FOLIC ACID+ZINIC+VITAMIN (CONVIRON FORTE) [Concomitant]
  5. VITAMIN D (ACTIVE-D) [Concomitant]

REACTIONS (2)
  - Vision blurred [None]
  - Optic neuritis [None]
